FAERS Safety Report 15062282 (Version 1)
Quarter: 2018Q2

REPORT INFORMATION
  Report Type: Spontaneous
  Country: CZ (occurrence: CZ)
  Receive Date: 20180625
  Receipt Date: 20180625
  Transmission Date: 20180711
  Serious: Yes (Life-Threatening, Hospitalization, Other)
  Sender: FDA-Public Use
  Company Number: CZ-AMGEN-CZESP2018083597

PATIENT
  Age: 65 Year
  Sex: Male

DRUGS (13)
  1. PREDNISON [Concomitant]
     Active Substance: PREDNISONE
     Dosage: 20 MG, BID (1-1-0)
     Route: 048
  2. DUPHALAC [Concomitant]
     Active Substance: LACTULOSE
     Dosage: 20 ML, TID (1-1-1 A 20ML)
     Route: 048
  3. LEXAURIN [Concomitant]
     Active Substance: BROMAZEPAM
     Dosage: 1.5 MG, QHS (0-0-1)
     Route: 048
  4. NOVALGIN [Concomitant]
     Indication: PAIN
     Dosage: 500 MG, TID (1-1-1 WHEN PAIN)
     Route: 048
  5. DEGAN [Concomitant]
     Active Substance: METOCLOPRAMIDE HYDROCHLORIDE
     Indication: NAUSEA
     Dosage: 10 MG, TID (1-1-1 IF FEELING DIZZY)
     Route: 048
  6. AGEN [Concomitant]
     Active Substance: AMLODIPINE BESYLATE
     Dosage: 5 MG, QD (1-0-0)
     Route: 048
  7. OXALIPLATIN. [Concomitant]
     Active Substance: OXALIPLATIN
     Indication: RECTOSIGMOID CANCER
     Dosage: UNK
     Dates: start: 20180530
  8. VECTIBIX [Suspect]
     Active Substance: PANITUMUMAB
     Indication: RECTOSIGMOID CANCER
     Dosage: 444 MG, UNK (COMBINED WITH FOLFOX IN A PALLIATIVE BIO-CHEMOTHERAPEUTIC REGIMEN)
     Route: 041
     Dates: start: 20180530, end: 20180530
  9. FORADIL [Concomitant]
     Active Substance: FORMOTEROL FUMARATE
     Dosage: 12 MUG, BID (1-0-1)
     Route: 055
  10. 5 FU [Concomitant]
     Active Substance: FLUOROURACIL
     Indication: RECTOSIGMOID CANCER
     Dosage: UNK
     Dates: start: 20180530
  11. NAC AL [Concomitant]
     Dosage: 600 MG, BID (1-0-1)
     Route: 048
  12. CONTROLOC [Concomitant]
     Active Substance: PANTOPRAZOLE SODIUM
     Dosage: 40 MG, QD (1-0-0)
     Route: 048
  13. FOLINIC ACID [Concomitant]
     Active Substance: LEUCOVORIN
     Indication: RECTOSIGMOID CANCER
     Dosage: UNK
     Dates: start: 20180530

REACTIONS (5)
  - Respiratory failure [Recovered/Resolved]
  - Accelerated hypertension [Recovered/Resolved]
  - Pulmonary oedema [Recovered/Resolved]
  - Dyspnoea at rest [Recovered/Resolved]
  - Cyanosis [Recovered/Resolved]

NARRATIVE: CASE EVENT DATE: 20180530
